FAERS Safety Report 5765987-3 (Version None)
Quarter: 2008Q2

REPORT INFORMATION
  Report Type: 
  Country: None (occurrence: None)
  Receive Date: 20080611
  Receipt Date: 20080402
  Transmission Date: 20081010
  Serious: Yes (Other)
  Sender: FDA-Public Use
  Company Number: US-BRISTOL-MYERS SQUIBB COMPANY-14135040

PATIENT
  Age: 78 Year
  Sex: Female

DRUGS (4)
  1. SINEMET [Suspect]
  2. PLAVIX [Concomitant]
  3. KEPPRA [Concomitant]
  4. VITAMINS [Concomitant]

REACTIONS (1)
  - MALIGNANT MELANOMA STAGE I [None]
